FAERS Safety Report 25535096 (Version 1)
Quarter: 2025Q3

REPORT INFORMATION
  Report Type: Spontaneous
  Country: US (occurrence: US)
  Receive Date: 20250709
  Receipt Date: 20250709
  Transmission Date: 20251021
  Serious: Yes (Hospitalization, Other)
  Sender: NOVARTIS
  Company Number: US-002147023-NVSC2025US106381

PATIENT
  Sex: Male
  Weight: 90.72 kg

DRUGS (1)
  1. NEORAL [Suspect]
     Active Substance: CYCLOSPORINE
     Indication: Transplant
     Dosage: 25 MG, BID
     Route: 048
     Dates: start: 20151010

REACTIONS (6)
  - Glaucoma [Unknown]
  - Visual impairment [Unknown]
  - Tunnel vision [Unknown]
  - Fracture [Unknown]
  - Neuropathy peripheral [Unknown]
  - Urinary tract infection [Unknown]
